FAERS Safety Report 18964004 (Version 1)
Quarter: 2021Q1

REPORT INFORMATION
  Report Type: Spontaneous
  Country: US (occurrence: US)
  Receive Date: 20210303
  Receipt Date: 20210303
  Transmission Date: 20210420
  Serious: Yes (Other)
  Sender: FDA-Public Use
  Company Number: US-AMNEAL PHARMACEUTICALS-2020-AMRX-00554

PATIENT
  Age: 73 Year
  Sex: Male

DRUGS (2)
  1. RYTARY [Suspect]
     Active Substance: CARBIDOPA\LEVODOPA
     Dosage: 61.25?245MG, 4X/DAY AT 7AM, 12PM, 5PM, AND AT 10PM ALONG WITH 48.75/195MG
     Route: 048
  2. RYTARY [Suspect]
     Active Substance: CARBIDOPA\LEVODOPA
     Indication: PARKINSON^S DISEASE
     Dosage: 48.75/195MG, 4X/DAY, AT 7AM, 12PM, 5PM, AND AT 10PM ALONG WITH 61.25?245MG
     Route: 048

REACTIONS (10)
  - Balance disorder [Unknown]
  - Fall [Unknown]
  - Speech disorder [Unknown]
  - Akinesia [Unknown]
  - Head injury [Unknown]
  - Memory impairment [Unknown]
  - Tremor [Unknown]
  - Hallucination [Unknown]
  - Suicidal ideation [Unknown]
  - Dry mouth [Unknown]

NARRATIVE: CASE EVENT DATE: 20200219
